FAERS Safety Report 13721618 (Version 1)
Quarter: 2017Q3

REPORT INFORMATION
  Report Type: Spontaneous
  Country: US (occurrence: US)
  Receive Date: 20170706
  Receipt Date: 20170706
  Transmission Date: 20171127
  Serious: No
  Sender: FDA-Public Use
  Company Number: None

PATIENT
  Age: 70 Year
  Sex: Female
  Weight: 86.18 kg

DRUGS (2)
  1. PROAIR HFA [Suspect]
     Active Substance: ALBUTEROL SULFATE
     Indication: DYSPNOEA
     Dosage: DOSE-FREQUENCY - USE 1 TO 2 INHALATIONS 1 TO 3 MINUTES APART EVERY 4 TO 6 HOURS AS NEEDED
     Route: 055
     Dates: start: 20170608, end: 20170627
  2. PROAIR HFA [Suspect]
     Active Substance: ALBUTEROL SULFATE
     Indication: WHEEZING
     Dosage: DOSE-FREQUENCY - USE 1 TO 2 INHALATIONS 1 TO 3 MINUTES APART EVERY 4 TO 6 HOURS AS NEEDED
     Route: 055
     Dates: start: 20170608, end: 20170627

REACTIONS (1)
  - Drug ineffective [None]

NARRATIVE: CASE EVENT DATE: 20170627
